FAERS Safety Report 5600248-4 (Version None)
Quarter: 2007Q4

REPORT INFORMATION
  Report Type: 
  Country: None (occurrence: None)
  Receive Date: 20071227
  Receipt Date: 20070927
  Transmission Date: 20080405
  Serious: Yes (Other)
  Sender: FDA-Public Use
  Company Number: 2007S1000246

PATIENT
  Age: 40 Year
  Sex: Female
  Weight: 78.0187 kg

DRUGS (3)
  1. SORIATANE [Suspect]
     Indication: ERYTHRODERMIC PSORIASIS
     Dosage: 50 MG;QD;PO : 25 MG;QD;PO
     Route: 048
     Dates: start: 20060101, end: 20070401
  2. SORIATANE [Suspect]
     Indication: ERYTHRODERMIC PSORIASIS
     Dosage: 50 MG;QD;PO : 25 MG;QD;PO
     Route: 048
     Dates: start: 20070401, end: 20070901
  3. SELOZOK [Concomitant]

REACTIONS (2)
  - BLOOD GLUCOSE INCREASED [None]
  - BLOOD TRIGLYCERIDES INCREASED [None]
